FAERS Safety Report 17917593 (Version 1)
Quarter: 2020Q2

REPORT INFORMATION
  Report Type: Spontaneous
  Country: NL (occurrence: NL)
  Receive Date: 20200619
  Receipt Date: 20200619
  Transmission Date: 20200714
  Serious: Yes (Hospitalization)
  Sender: FDA-Public Use
  Company Number: NL-TEVA-2020-NL-1788699

PATIENT
  Age: 39 Year
  Sex: Female
  Weight: 74 kg

DRUGS (8)
  1. MOVICOLON [Concomitant]
     Active Substance: POLYETHYLENE GLYCOL 3350\POTASSIUM CHLORIDE\SODIUM BICARBONATE\SODIUM CHLORIDE
  2. DOXORUBICIN [Suspect]
     Active Substance: DOXORUBICIN
     Indication: BREAST CANCER
     Dosage: 110 MG
     Dates: start: 20200522, end: 20200522
  3. DEXAMETHASON [Concomitant]
     Active Substance: DEXAMETHASONE
  4. CYCLOFOSFAMIDE [Concomitant]
     Active Substance: CYCLOPHOSPHAMIDE
  5. GRANISETRON [Concomitant]
     Active Substance: GRANISETRON
  6. AUGMENTIN [Concomitant]
     Active Substance: AMOXICILLIN\CLAVULANATE POTASSIUM
     Dates: start: 20200519, end: 20200526
  7. METOCLOPRAMIDE. [Concomitant]
     Active Substance: METOCLOPRAMIDE
  8. PANTOPRAZOL [Concomitant]
     Active Substance: PANTOPRAZOLE SODIUM

REACTIONS (2)
  - Erythema [Recovered/Resolved]
  - Telangiectasia [Recovered/Resolved]

NARRATIVE: CASE EVENT DATE: 20200522
